FAERS Safety Report 6509984-9 (Version None)
Quarter: 2009Q4

REPORT INFORMATION
  Report Type: 
  Country: None (occurrence: None)
  Receive Date: 20091222
  Receipt Date: 20091218
  Transmission Date: 20100525
  Serious: Yes (Death)
  Sender: FDA-Public Use
  Company Number: PHHY2009MX56999

PATIENT
  Age: 83 Year
  Sex: Female

DRUGS (3)
  1. DIOVAN HCT [Suspect]
     Indication: HYPERTENSION
     Dosage: 1 TABLET (160/12.5 MG) PER DAY
     Route: 048
     Dates: start: 20080301
  2. CRESTOR [Concomitant]
     Dosage: 1 TABLET PER DAY
  3. ASPIRIN [Concomitant]
     Dosage: 1 TABLET PER DAY

REACTIONS (1)
  - MULTI-ORGAN FAILURE [None]
